FAERS Safety Report 25587984 (Version 1)
Quarter: 2025Q3

REPORT INFORMATION
  Report Type: Spontaneous
  Country: EU (occurrence: EU)
  Receive Date: 20250721
  Receipt Date: 20250721
  Transmission Date: 20251020
  Serious: Yes (Hospitalization)
  Sender: ABBVIE
  Company Number: None

PATIENT
  Age: 79 Year
  Sex: Female
  Weight: 63 kg

DRUGS (3)
  1. AVIBACTAM SODIUM\CEFTAZIDIME [Suspect]
     Active Substance: AVIBACTAM SODIUM\CEFTAZIDIME
     Indication: Klebsiella bacteraemia
     Route: 042
     Dates: start: 20250628, end: 20250630
  2. RIFAMPIN [Concomitant]
     Active Substance: RIFAMPIN
     Indication: Product used for unknown indication
     Dosage: 600 MG, DAILY (DIE)
     Route: 048
     Dates: start: 20250528, end: 20250630
  3. Ceftarolina fosamil [Concomitant]
     Indication: Endocarditis staphylococcal
     Dosage: 300 MG, 2X/DAY (EVERY 12 HOURS)?STERILE
     Route: 042
     Dates: start: 20250528, end: 20250630

REACTIONS (3)
  - Stomatitis [Recovered/Resolved]
  - Rash [Recovered/Resolved]
  - Pyrexia [Recovered/Resolved]

NARRATIVE: CASE EVENT DATE: 20250629
